FAERS Safety Report 4296358-7 (Version None)
Quarter: 2004Q1

REPORT INFORMATION
  Report Type: 
  Country: None (occurrence: None)
  Receive Date: 20040213
  Receipt Date: 20040213
  Transmission Date: 20041129
  Serious: Yes (Hospitalization)
  Sender: FDA-Public Use
  Company Number: None

PATIENT
  Sex: Male
  Weight: 89.8122 kg

DRUGS (6)
  1. DOXYCYCLINE [Suspect]
     Indication: LYME DISEASE
     Dosage: PO [THREE DAYS PRIOR TO ER VISIT]
     Route: 048
  2. CARDURA [Concomitant]
  3. ATENOLOL [Concomitant]
  4. CELEBREX [Concomitant]
  5. PREVACID [Concomitant]
  6. GLUCOSAMINE/CONDROITIN [Concomitant]

REACTIONS (2)
  - HYPOAESTHESIA [None]
  - SWELLING FACE [None]
